FAERS Safety Report 4356906-5 (Version None)
Quarter: 2004Q2

REPORT INFORMATION
  Report Type: 
  Country: None (occurrence: None)
  Receive Date: 20040507
  Receipt Date: 20040416
  Transmission Date: 20050107
  Serious: Yes (Hospitalization)
  Sender: FDA-Public Use
  Company Number: EWC040238095

PATIENT
  Age: 71 Year
  Sex: Female

DRUGS (19)
  1. PERMAX [Suspect]
     Indication: PARKINSON'S DISEASE
     Dosage: 1 MG/3 DAY
     Dates: start: 19990320, end: 20030204
  2. ORTHO-GYNEST (ESTRIOL) [Concomitant]
  3. PROLOPA [Concomitant]
  4. CLONAZEPAM [Concomitant]
  5. SULFASALAZINE [Concomitant]
  6. MESALAZINE [Concomitant]
  7. INDERAL [Concomitant]
  8. EMCONCOR    (BISOPROLOL) [Concomitant]
  9. APROVEL  (IRBESARTAN) [Concomitant]
  10. DIXARIT  (CLONIDINE HYDROCHLORIDE) [Concomitant]
  11. CATAFLAM (DICLOFENAC SODIUM) [Concomitant]
  12. AUGMENTIN [Concomitant]
  13. FRAXIPARIN(HEPARIN-FRACTION, CALCIUM SALT) [Concomitant]
  14. REPARIL   (ESCIN) [Concomitant]
  15. MYOLASTAN   (TETRAZEPAM) [Concomitant]
  16. VOLTAREN [Concomitant]
  17. STEARIC ACID [Concomitant]
  18. SEROXAT [Concomitant]
  19. EMCORETIC [Concomitant]

REACTIONS (17)
  - COLITIS [None]
  - DEEP VEIN THROMBOSIS [None]
  - DISEASE RECURRENCE [None]
  - FATIGUE [None]
  - GASTRIC NEOPLASM [None]
  - HYDRONEPHROSIS [None]
  - LYMPHADENOPATHY [None]
  - MUSCLE CRAMP [None]
  - NAUSEA [None]
  - NEPHRITIS INTERSTITIAL [None]
  - OEDEMA PERIPHERAL [None]
  - PARKINSON'S DISEASE [None]
  - RENAL PAIN [None]
  - RETROPERITONEAL FIBROSIS [None]
  - SCIATICA [None]
  - SENSATION OF HEAVINESS [None]
  - TRIGEMINAL NEURALGIA [None]
